FAERS Safety Report 20654980 (Version 5)
Quarter: 2023Q1

REPORT INFORMATION
  Report Type: Spontaneous
  Country: US (occurrence: US)
  Receive Date: 20220330
  Receipt Date: 20230111
  Transmission Date: 20230418
  Serious: Yes (Hospitalization, Other)
  Sender: FDA-Public Use
  Company Number: US-ALXN-A202203989

PATIENT
  Sex: Female

DRUGS (1)
  1. ULTOMIRIS [Suspect]
     Active Substance: RAVULIZUMAB-CWVZ
     Indication: Atypical haemolytic uraemic syndrome
     Dosage: UNK, UNK, EVERY 8 WEEKS
     Route: 042
     Dates: start: 202009

REACTIONS (2)
  - Hypertensive crisis [Recovering/Resolving]
  - Blood pressure increased [Recovered/Resolved]
